FAERS Safety Report 24109929 (Version 1)
Quarter: 2024Q3

REPORT INFORMATION
  Report Type: Spontaneous
  Country: JP (occurrence: JP)
  Receive Date: 20240718
  Receipt Date: 20240718
  Transmission Date: 20241017
  Serious: Yes (Hospitalization)
  Sender: OTSUKA
  Company Number: JP-OTSUKA-2023_030182

PATIENT
  Age: 46 Year
  Sex: Male

DRUGS (8)
  1. NALMEFENE HYDROCHLORIDE DIHYDRATE [Suspect]
     Active Substance: NALMEFENE HYDROCHLORIDE DIHYDRATE
     Indication: Alcoholism
     Dosage: 1-2 HOURS BEFORE DRINKING ALCOHOL, 10 MG/DAY
     Route: 048
     Dates: start: 20231110, end: 20231112
  2. ABILIFY [Suspect]
     Active Substance: ARIPIPRAZOLE
     Indication: Product used for unknown indication
     Dosage: 5 MG/DAY
     Route: 048
     Dates: start: 20231104, end: 20231119
  3. PRIMPERAN [Suspect]
     Active Substance: METOCLOPRAMIDE HYDROCHLORIDE
     Indication: Product used for unknown indication
     Dosage: 5MG/DAY
     Route: 048
     Dates: start: 20231110, end: 20231112
  4. QUETIAPINE FUMARATE [Concomitant]
     Active Substance: QUETIAPINE FUMARATE
     Indication: Product used for unknown indication
     Dosage: 100MG/DAY
     Route: 048
     Dates: start: 20190412
  5. QUETIAPINE FUMARATE [Concomitant]
     Active Substance: QUETIAPINE FUMARATE
     Indication: Product used for unknown indication
     Dosage: 50MG/DAY
     Route: 048
     Dates: start: 20190412
  6. LAMICTAL [Concomitant]
     Active Substance: LAMOTRIGINE
     Indication: Product used for unknown indication
     Dosage: 300MG/DAY
     Route: 048
     Dates: start: 20210105
  7. BELSOMRA [Concomitant]
     Active Substance: SUVOREXANT
     Indication: Product used for unknown indication
     Dosage: 15MG/DAY
     Route: 048
     Dates: start: 20210105
  8. RILMAZAFONE HYDROCHLORIDE [Concomitant]
     Active Substance: RILMAZAFONE HYDROCHLORIDE
     Indication: Product used for unknown indication
     Dosage: 1MG/DAY
     Route: 048
     Dates: start: 20210824

REACTIONS (2)
  - Alcohol withdrawal syndrome [Recovered/Resolved]
  - Anxiety [Recovered/Resolved]

NARRATIVE: CASE EVENT DATE: 20231111
